FAERS Safety Report 20054175 (Version 1)
Quarter: 2021Q4

REPORT INFORMATION
  Report Type: Spontaneous
  Country: US (occurrence: US)
  Receive Date: 20211110
  Receipt Date: 20211110
  Transmission Date: 20220303
  Serious: No
  Sender: FDA-Public Use
  Company Number: US-TRIS PHARMA, INC.-21US009942

PATIENT

DRUGS (1)
  1. QUILLIVANT XR [Suspect]
     Active Substance: METHYLPHENIDATE HYDROCHLORIDE
     Indication: Product used for unknown indication
     Dosage: 1.5 MILLILITRE, QD
     Route: 048
     Dates: start: 20210915

REACTIONS (3)
  - Off label use [Unknown]
  - Mood swings [Unknown]
  - Agitation [Unknown]

NARRATIVE: CASE EVENT DATE: 20210915
